FAERS Safety Report 17069874 (Version 1)
Quarter: 2019Q4

REPORT INFORMATION
  Report Type: Spontaneous
  Country: GB (occurrence: GB)
  Receive Date: 20191125
  Receipt Date: 20191125
  Transmission Date: 20200122
  Serious: Yes (Other)
  Sender: FDA-Public Use
  Company Number: GB-TEVA-2019-GB-1140330

PATIENT
  Age: 41 Year
  Sex: Male
  Weight: 91 kg

DRUGS (13)
  1. DILTIAZEM. [Concomitant]
     Active Substance: DILTIAZEM
     Dosage: 2 DOSAGE FORMS 1 DAYS
     Dates: start: 20190720, end: 20190803
  2. MACROGOL [Concomitant]
     Active Substance: POLYETHYLENE GLYCOLS
     Dosage: 2 DOSAGE FORMS
     Dates: start: 20180718, end: 20191009
  3. CETIRIZINE [Concomitant]
     Active Substance: CETIRIZINE HYDROCHLORIDE
     Dosage: 1 DOSAGE FORMS
     Dates: start: 20190124
  4. PHENOXYMETHYLPENICILLIN [Suspect]
     Active Substance: PENICILLIN V
     Dosage: 250 MG
     Dates: start: 20191009
  5. ZOPICLONE [Concomitant]
     Active Substance: ZOPICLONE
     Dosage: EACH NIGHT , 1 DOSAGE FORMS
     Dates: start: 20190322, end: 20191009
  6. MIRTAZAPINE. [Concomitant]
     Active Substance: MIRTAZAPINE
     Dosage: 1 DOSAGE FORMS
     Dates: start: 20190124
  7. OMEPRAZOLE. [Concomitant]
     Active Substance: OMEPRAZOLE
     Dosage: 1 DOSAGE FORMS
     Dates: start: 20190124
  8. NAPROXEN. [Concomitant]
     Active Substance: NAPROXEN
     Dosage: 1 DOSAGE FORMS
     Dates: start: 20190124
  9. METHADONE [Concomitant]
     Active Substance: METHADONE HYDROCHLORIDE
     Dosage: VARIABLE DOSE
     Dates: start: 20191011
  10. FERROUS FUMARATE [Concomitant]
     Active Substance: FERROUS FUMARATE
     Dosage: 1 DOSAGE FORMS
     Dates: start: 20190621
  11. EPILIM [Concomitant]
     Active Substance: VALPROATE SODIUM
     Dosage: VARIABLE DOSE
     Dates: start: 20190114
  12. GABAPENTIN. [Concomitant]
     Active Substance: GABAPENTIN
     Dosage: 2 DOSAGE FORMS
     Dates: start: 20190124
  13. CLENIL MODULITE [Concomitant]
     Active Substance: BECLOMETHASONE DIPROPIONATE
     Dosage: 2 DOSAGE FORMS 1 DAYS
     Dates: start: 20170308, end: 20191009

REACTIONS (2)
  - Rash [Unknown]
  - Swollen tongue [Unknown]

NARRATIVE: CASE EVENT DATE: 20191016
